FAERS Safety Report 19491083 (Version 1)
Quarter: 2021Q3

REPORT INFORMATION
  Report Type: Spontaneous
  Country: DE (occurrence: DE)
  Receive Date: 20210705
  Receipt Date: 20210705
  Transmission Date: 20211014
  Serious: Yes (Hospitalization)
  Sender: FDA-Public Use
  Company Number: DE-TEVA-2021-DE-1929460

PATIENT
  Age: 26 Year
  Sex: Female
  Weight: 80 kg

DRUGS (1)
  1. AMOXICILLIN. [Suspect]
     Active Substance: AMOXICILLIN
     Route: 065

REACTIONS (8)
  - Lymphadenopathy [Recovering/Resolving]
  - Fatigue [Recovering/Resolving]
  - Pyrexia [Recovering/Resolving]
  - Lymphocytosis [Recovering/Resolving]
  - Leukocytosis [Recovering/Resolving]
  - Rash [Recovering/Resolving]
  - Oropharyngeal pain [Recovering/Resolving]
  - General physical health deterioration [Recovering/Resolving]
